FAERS Safety Report 7052379-2 (Version None)
Quarter: 2010Q4

REPORT INFORMATION
  Report Type: 
  Country: None (occurrence: None)
  Receive Date: 20101019
  Receipt Date: 20101007
  Transmission Date: 20110411
  Serious: Yes (Other)
  Sender: FDA-Public Use
  Company Number: US-PURDUE-USA-2010-0045677

PATIENT
  Sex: Female
  Weight: 56.3 kg

DRUGS (18)
  1. OXYCONTIN [Suspect]
     Indication: PAIN
     Dosage: 40 MG, Q12H
     Route: 048
     Dates: start: 20100806, end: 20100813
  2. FENTANYL [Concomitant]
  3. IMIPRAMINE [Concomitant]
  4. MELATONIN [Concomitant]
  5. MARINOL                            /00897601/ [Concomitant]
  6. ATIVAN [Concomitant]
  7. KYTRIL [Concomitant]
  8. NALOXONE [Concomitant]
  9. CREON [Concomitant]
  10. MIRALAX [Concomitant]
  11. PREVACID [Concomitant]
  12. ACETAMINOPHEN [Concomitant]
  13. BENZOCAINE [Concomitant]
  14. DARVOCET [Concomitant]
  15. ATIVAN [Concomitant]
  16. COMPAZINE [Concomitant]
  17. SIMETHICONE [Concomitant]
  18. HYDROCORTISONE [Concomitant]

REACTIONS (4)
  - GASTROINTESTINAL HYPOMOTILITY [None]
  - INADEQUATE ANALGESIA [None]
  - MEDICATION RESIDUE [None]
  - UNEVALUABLE EVENT [None]
